FAERS Safety Report 4314935-1 (Version None)
Quarter: 2004Q1

REPORT INFORMATION
  Report Type: 
  Country: None (occurrence: None)
  Receive Date: 20040310
  Receipt Date: 20040310
  Transmission Date: 20041129
  Serious: Yes (Life-Threatening, Hospitalization)
  Sender: FDA-Public Use
  Company Number: None

PATIENT
  Age: 36 Year
  Sex: Female
  Weight: 54.4316 kg

DRUGS (3)
  1. EFFEXOR XR [Suspect]
     Indication: ARTHRALGIA
     Dosage: ABOUT 30 TO 40 MG
     Dates: start: 20040101
  2. EFFEXOR XR [Suspect]
     Indication: NECK PAIN
     Dosage: ABOUT 30 TO 40 MG
     Dates: start: 20040101
  3. ALPRAZOLAM [Suspect]
     Dosage: 1 TO 3 TIMES DAILY
     Dates: start: 20040201

REACTIONS (11)
  - DIZZINESS [None]
  - DYSPNOEA [None]
  - FEELING ABNORMAL [None]
  - FEELING HOT [None]
  - HEADACHE [None]
  - HOMICIDAL IDEATION [None]
  - MALAISE [None]
  - MORBID THOUGHTS [None]
  - SUICIDAL IDEATION [None]
  - TREATMENT NONCOMPLIANCE [None]
  - VISION BLURRED [None]
